FAERS Safety Report 17071043 (Version 1)
Quarter: 2019Q4

REPORT INFORMATION
  Report Type: Spontaneous
  Country: NZ (occurrence: NZ)
  Receive Date: 20191125
  Receipt Date: 20191125
  Transmission Date: 20200122
  Serious: Yes (Other)
  Sender: FDA-Public Use
  Company Number: NZ-PFIZER INC-2019503434

PATIENT
  Age: 7 Month
  Sex: Female

DRUGS (2)
  1. CYTARABINE. [Suspect]
     Active Substance: CYTARABINE
     Indication: LANGERHANS^ CELL HISTIOCYTOSIS
     Dosage: 500 MG/M2, (TWICE DAILY FOR DAYS 1 TO 5 OF EACH CYCLE)
  2. CLADRIBINE. [Suspect]
     Active Substance: CLADRIBINE
     Indication: LANGERHANS^ CELL HISTIOCYTOSIS
     Dosage: 0.3 MG/KG, CYCLIC (DAILY FOR DAYS 2 TO 6 OF EACH CYCLE)

REACTIONS (5)
  - Thrombocytopenia [Recovered/Resolved]
  - Alanine aminotransferase increased [Unknown]
  - Anaemia [Recovered/Resolved]
  - Lymphopenia [Unknown]
  - Aspartate aminotransferase increased [Unknown]
